FAERS Safety Report 25741254 (Version 1)
Quarter: 2025Q3

REPORT INFORMATION
  Report Type: Spontaneous
  Country: US (occurrence: US)
  Receive Date: 20250829
  Receipt Date: 20250829
  Transmission Date: 20251020
  Serious: Yes (Other)
  Sender: NOVO NORDISK
  Company Number: US-NOVOPROD-1506193

PATIENT
  Age: 61 Year
  Sex: Female
  Weight: 61.678 kg

DRUGS (3)
  1. WEGOVY [Suspect]
     Active Substance: SEMAGLUTIDE
     Indication: Weight control
     Dosage: 0.5 MG, QW
     Route: 058
     Dates: start: 20250303
  2. WEGOVY [Suspect]
     Active Substance: SEMAGLUTIDE
     Dosage: 0.5 MG, QW(DOSE DECREASED)
     Route: 058
     Dates: start: 20250805
  3. WEGOVY [Suspect]
     Active Substance: SEMAGLUTIDE
     Route: 058

REACTIONS (4)
  - Illness [Recovered/Resolved]
  - Feeding disorder [Recovered/Resolved]
  - Vomiting [Recovered/Resolved]
  - Diarrhoea [Recovered/Resolved]

NARRATIVE: CASE EVENT DATE: 20250731
